FAERS Safety Report 5050424-7 (Version None)
Quarter: 2006Q3

REPORT INFORMATION
  Report Type: 
  Country: None (occurrence: None)
  Receive Date: 20060707
  Receipt Date: 20060621
  Transmission Date: 20061208
  Serious: Yes (Other)
  Sender: FDA-Public Use
  Company Number: 2006RR-02766

PATIENT
  Age: 60 Year
  Sex: 0

DRUGS (6)
  1. ENALAPRIL MALEATE [Suspect]
     Indication: BLOOD PRESSURE INCREASED
     Dosage: 5 MG, ORAL
     Route: 048
     Dates: start: 20050728, end: 20060512
  2. ATORVASTATIN CALCIUM [Concomitant]
  3. CODEINE PHOSPHATE (CODEINE PHOSPHATE) [Concomitant]
  4. ACETAMINOPHEN [Concomitant]
  5. ACETAMINOPHEN W/ CODEINE [Concomitant]
  6. QUININE SULFATE [Concomitant]

REACTIONS (2)
  - ANGIONEUROTIC OEDEMA [None]
  - URTICARIA [None]
